FAERS Safety Report 8349640-8 (Version None)
Quarter: 2012Q2

REPORT INFORMATION
  Report Type: 
  Country: None (occurrence: None)
  Receive Date: 20120510
  Receipt Date: 20120507
  Transmission Date: 20120825
  Serious: Yes (Other)
  Sender: FDA-Public Use
  Company Number: US-PFIZER INC-2012054026

PATIENT
  Sex: Male

DRUGS (2)
  1. METHADONE [Concomitant]
     Indication: PAIN
     Dosage: 5 MG, (DAILY)
     Dates: start: 20070101
  2. CELEBREX [Suspect]
     Indication: ARTHRITIS
     Dosage: 100 MG, 2X/DAY
     Route: 048

REACTIONS (2)
  - DYSPNOEA [None]
  - HAEMORRHAGE [None]
